FAERS Safety Report 20008446 (Version 2)
Quarter: 2021Q4

REPORT INFORMATION
  Report Type: Spontaneous
  Country: JP (occurrence: JP)
  Receive Date: 20211028
  Receipt Date: 20211116
  Transmission Date: 20220303
  Serious: Yes (Other)
  Sender: FDA-Public Use
  Company Number: JP-EAGLE PHARMACEUTICALS, INC.-JP-2021EAG000232

PATIENT
  Age: 57 Year
  Sex: Female

DRUGS (13)
  1. BENDAMUSTINE HYDROCHLORIDE [Suspect]
     Active Substance: BENDAMUSTINE HYDROCHLORIDE
     Indication: Follicular lymphoma stage IV
     Dosage: UNK (CYCLE 1 GB THERAPY)
     Route: 041
  2. BENDAMUSTINE HYDROCHLORIDE [Suspect]
     Active Substance: BENDAMUSTINE HYDROCHLORIDE
     Dosage: UNK (CYCLE 2 GB THERAPY)
     Route: 041
  3. BENDAMUSTINE HYDROCHLORIDE [Suspect]
     Active Substance: BENDAMUSTINE HYDROCHLORIDE
     Dosage: UNK (CYCLE 3 GB THERAPY)
     Route: 041
  4. BENDAMUSTINE HYDROCHLORIDE [Suspect]
     Active Substance: BENDAMUSTINE HYDROCHLORIDE
     Dosage: UNK (CYCLE 4 GB THERAPY)
     Route: 041
  5. BENDAMUSTINE HYDROCHLORIDE [Suspect]
     Active Substance: BENDAMUSTINE HYDROCHLORIDE
     Dosage: UNK (CYCLE 5 GB THERAPY)
     Route: 041
  6. BENDAMUSTINE HYDROCHLORIDE [Suspect]
     Active Substance: BENDAMUSTINE HYDROCHLORIDE
     Dosage: UNK (CYCLE 6 GB THERAPY)
     Route: 041
  7. GAZYVA [Suspect]
     Active Substance: OBINUTUZUMAB
     Indication: Follicular lymphoma stage IV
     Dosage: UNK (CYCLE 1 GB THERAPY)
     Route: 041
  8. GAZYVA [Suspect]
     Active Substance: OBINUTUZUMAB
     Dosage: UNK (CYCLE 2 GB THERAPY)
     Route: 041
  9. GAZYVA [Suspect]
     Active Substance: OBINUTUZUMAB
     Dosage: UNK (CYCLE 3 GB THERAPY)
     Route: 041
  10. GAZYVA [Suspect]
     Active Substance: OBINUTUZUMAB
     Dosage: UNK (CYCLE 4 GB THERAPY)
     Route: 041
  11. GAZYVA [Suspect]
     Active Substance: OBINUTUZUMAB
     Dosage: UNK (CYCLE 5 GB THERAPY)
     Route: 041
  12. GAZYVA [Suspect]
     Active Substance: OBINUTUZUMAB
     Dosage: UNK (CYCLE 6 GB THERAPY)
     Route: 041
  13. GAZYVA [Suspect]
     Active Substance: OBINUTUZUMAB
     Dosage: UNK (MAINTENANCE THERAPY)
     Route: 041

REACTIONS (1)
  - Colitis [Recovered/Resolved]
